FAERS Safety Report 21980505 (Version 2)
Quarter: 2023Q2

REPORT INFORMATION
  Report Type: Spontaneous
  Country: US (occurrence: US)
  Receive Date: 20230211
  Receipt Date: 20230413
  Transmission Date: 20230722
  Serious: No
  Sender: FDA-Public Use
  Company Number: None

PATIENT
  Sex: Female

DRUGS (1)
  1. LORAZEPAM [Suspect]
     Active Substance: LORAZEPAM
     Indication: Product used for unknown indication
     Route: 065

REACTIONS (10)
  - Abdominal discomfort [Recovered/Resolved]
  - Aphasia [Recovered/Resolved]
  - Dysgeusia [Recovered/Resolved]
  - Sedation [Recovered/Resolved]
  - Dizziness [Recovered/Resolved]
  - Sleep disorder [Recovered/Resolved]
  - Balance disorder [Recovered/Resolved]
  - Headache [Recovered/Resolved]
  - Product taste abnormal [Recovered/Resolved]
  - Product substitution issue [Unknown]
